FAERS Safety Report 4805565-3 (Version None)
Quarter: 2005Q4

REPORT INFORMATION
  Report Type: 
  Country: None (occurrence: None)
  Receive Date: 20051018
  Receipt Date: 20051005
  Transmission Date: 20060501
  Serious: Yes (Hospitalization)
  Sender: FDA-Public Use
  Company Number: 2005BI002492

PATIENT
  Age: 60 Year
  Sex: Female

DRUGS (5)
  1. AVONEX LIQUID [Suspect]
     Indication: MULTIPLE SCLEROSIS
     Dates: start: 20040312
  2. AVONEX [Suspect]
     Indication: MULTIPLE SCLEROSIS
     Dates: start: 20040101
  3. NEURONTIN [Concomitant]
  4. ZOCOR [Concomitant]
  5. PLAVIX [Concomitant]

REACTIONS (1)
  - DIABETES MELLITUS [None]
